FAERS Safety Report 10538201 (Version 1)
Quarter: 2014Q4

REPORT INFORMATION
  Report Type: Spontaneous
  Country: DE (occurrence: DE)
  Receive Date: 20141023
  Receipt Date: 20141023
  Transmission Date: 20150529
  Serious: Yes (Congenital Anomaly)
  Sender: FDA-Public Use
  Company Number: DE-WATSON-2014-22356

PATIENT
  Age: 1 Day
  Sex: Male
  Weight: 2.49 kg

DRUGS (8)
  1. CITALOPRAM [Suspect]
     Active Substance: CITALOPRAM HYDROBROMIDE
     Indication: SELF-MEDICATION
     Dosage: 2.5 MG, DAILY
     Route: 064
  2. TRAMADOLOR [Concomitant]
     Active Substance: TRAMADOL
     Indication: SUBSTANCE ABUSER
     Dosage: 100 MG, BID
     Route: 064
  3. VOMACUR [Concomitant]
     Indication: VOMITING IN PREGNANCY
     Dosage: 50 MG, DAILY
     Route: 064
  4. VITAMIN B6 [Concomitant]
     Active Substance: PYRIDOXINE HYDROCHLORIDE
     Indication: VOMITING IN PREGNANCY
     Dosage: UNK
     Route: 064
  5. CEFUROXIM                          /00454602/ [Concomitant]
     Active Substance: CEFUROXIME
     Indication: PYELONEPHRITIS
     Dosage: UNK
     Route: 064
  6. PARACETAMOL [Concomitant]
     Active Substance: ACETAMINOPHEN
     Indication: HEADACHE
     Route: 064
  7. AMOXICILLIN                        /00249602/ [Concomitant]
     Indication: PYELONEPHRITIS
     Dosage: 1000 MG, BID
     Route: 064
  8. FEMIBION                           /01597501/ [Concomitant]
     Indication: PROPHYLAXIS OF NEURAL TUBE DEFECT
     Route: 064

REACTIONS (3)
  - Foetal exposure during pregnancy [Unknown]
  - Congenital anomaly [Unknown]
  - Syndactyly [Unknown]

NARRATIVE: CASE EVENT DATE: 20130806
